FAERS Safety Report 14000490 (Version 2)
Quarter: 2017Q4

REPORT INFORMATION
  Report Type: Spontaneous
  Country: US (occurrence: US)
  Receive Date: 20170922
  Receipt Date: 20171121
  Transmission Date: 20180321
  Serious: Yes (Other)
  Sender: FDA-Public Use
  Company Number: US-JNJFOC-20170703115

PATIENT
  Sex: Female
  Weight: 104.33 kg

DRUGS (10)
  1. CLARITIN [Concomitant]
     Active Substance: LORATADINE
     Indication: SEASONAL ALLERGY
     Route: 065
     Dates: start: 2013
  2. CRESTOR [Concomitant]
     Active Substance: ROSUVASTATIN CALCIUM
     Indication: BLOOD CHOLESTEROL INCREASED
     Route: 065
     Dates: start: 2013
  3. INVEGA SUSTENNA [Concomitant]
     Active Substance: PALIPERIDONE PALMITATE
     Indication: HALLUCINATION
     Dosage: MONTHLY
     Route: 030
     Dates: start: 2012
  4. BUSPAR [Concomitant]
     Active Substance: BUSPIRONE HYDROCHLORIDE
     Indication: ANXIETY
     Route: 065
     Dates: start: 2013
  5. LOSARTAN. [Concomitant]
     Active Substance: LOSARTAN
     Indication: HYPERTENSION
     Route: 065
     Dates: start: 2016
  6. PAXIL [Concomitant]
     Active Substance: PAROXETINE HYDROCHLORIDE
     Indication: ANXIETY
     Route: 065
     Dates: start: 2016
  7. BUSPAR [Concomitant]
     Active Substance: BUSPIRONE HYDROCHLORIDE
     Indication: ANXIETY
     Route: 065
     Dates: start: 2013
  8. XARELTO [Suspect]
     Active Substance: RIVAROXABAN
     Indication: THROMBOSIS
     Route: 048
  9. PALIPERIDONE. [Concomitant]
     Active Substance: PALIPERIDONE
     Indication: HALLUCINATION
     Route: 048
     Dates: start: 2017
  10. FESOTERODINE FUMARATE. [Concomitant]
     Active Substance: FESOTERODINE FUMARATE
     Indication: HYPERTONIC BLADDER
     Route: 065
     Dates: start: 2013

REACTIONS (3)
  - Abdominal discomfort [Unknown]
  - Abdominal pain upper [Unknown]
  - Melaena [Not Recovered/Not Resolved]

NARRATIVE: CASE EVENT DATE: 2017
